FAERS Safety Report 22968086 (Version 4)
Quarter: 2024Q1

REPORT INFORMATION
  Report Type: Spontaneous
  Country: US (occurrence: US)
  Receive Date: 20230921
  Receipt Date: 20240307
  Transmission Date: 20240409
  Serious: Yes (Other)
  Sender: FDA-Public Use
  Company Number: US-BRISTOL-MYERS SQUIBB COMPANY-2023-133755

PATIENT
  Age: 75 Year
  Sex: Female
  Weight: 89.81 kg

DRUGS (3)
  1. LENALIDOMIDE [Suspect]
     Active Substance: LENALIDOMIDE
     Indication: Plasma cell myeloma
     Dosage: TAKE 1 CAPSULE EVERY DAY ON DAYS 1-14 OF EACH 21DAY CYCLE WITH WATER AT THE SAME TIME EACH DAY
     Route: 048
     Dates: start: 20230831
  2. LENALIDOMIDE [Suspect]
     Active Substance: LENALIDOMIDE
     Dosage: TAKE 1 CAPSULE EVERY DAY ON DAYS 1-14 OF EACH 21DAY CYCLE WITH WATER AT THE SAME TIME EACH DAY
     Route: 048
  3. LENALIDOMIDE [Suspect]
     Active Substance: LENALIDOMIDE
     Route: 048

REACTIONS (13)
  - Pain [Unknown]
  - Movement disorder [Unknown]
  - Fatigue [Not Recovered/Not Resolved]
  - Axillary pain [Unknown]
  - Full blood count decreased [Unknown]
  - Bone pain [Unknown]
  - Off label use [Unknown]
  - Condition aggravated [Unknown]
  - Blood pressure fluctuation [Not Recovered/Not Resolved]
  - Peripheral swelling [Not Recovered/Not Resolved]
  - Paraesthesia [Not Recovered/Not Resolved]
  - Asthenia [Not Recovered/Not Resolved]
  - Decreased appetite [Not Recovered/Not Resolved]

NARRATIVE: CASE EVENT DATE: 20230901
